FAERS Safety Report 14043498 (Version 3)
Quarter: 2018Q2

REPORT INFORMATION
  Report Type: Spontaneous
  Country: US (occurrence: US)
  Receive Date: 20171004
  Receipt Date: 20180510
  Transmission Date: 20180711
  Serious: No
  Sender: FDA-Public Use
  Company Number: US-BRISTOL-MYERS SQUIBB COMPANY-BMS-2017-087551

PATIENT
  Sex: Female
  Weight: 85.72 kg

DRUGS (1)
  1. YERVOY [Suspect]
     Active Substance: IPILIMUMAB
     Indication: MALIGNANT MELANOMA
     Dosage: 10 MG/KG DOSE OF 850MG
     Route: 065
     Dates: start: 2017

REACTIONS (2)
  - Pruritus [Unknown]
  - Off label use [Unknown]
